FAERS Safety Report 21171346 (Version 3)
Quarter: 2022Q3

REPORT INFORMATION
  Report Type: Other
  Country: IT (occurrence: None)
  Receive Date: 20220804
  Receipt Date: 20220923
  Transmission Date: 20221027
  Serious: No
  Sender: FDA-Public Use
  Company Number: IT-ROCHE-3152348

PATIENT
  Age: 41 Year
  Sex: Female
  Weight: 90 kg

DRUGS (7)
  1. OCRELIZUMAB [Suspect]
     Active Substance: OCRELIZUMAB
     Indication: Primary progressive multiple sclerosis
     Route: 042
     Dates: start: 20201228
  2. LACOSAMIDE [Concomitant]
     Active Substance: LACOSAMIDE
     Route: 048
     Dates: start: 20210818
  3. DECAPEPTYL [Concomitant]
     Route: 030
     Dates: start: 202105
  4. TEMOZOLOMIDE [Concomitant]
     Active Substance: TEMOZOLOMIDE
     Route: 048
     Dates: start: 20220629, end: 20220703
  5. TEMOZOLOMIDE [Concomitant]
     Active Substance: TEMOZOLOMIDE
     Route: 048
     Dates: start: 20220727, end: 20220727
  6. ONDANSETRON [Concomitant]
     Active Substance: ONDANSETRON
     Route: 048
     Dates: start: 20220629, end: 20220703
  7. ONDANSETRON [Concomitant]
     Active Substance: ONDANSETRON
     Route: 048
     Dates: start: 20220727, end: 20220727

REACTIONS (1)
  - COVID-19 [Recovered/Resolved]

NARRATIVE: CASE EVENT DATE: 20220720
